FAERS Safety Report 11757193 (Version 1)
Quarter: 2015Q4

REPORT INFORMATION
  Report Type: Spontaneous
  Country: US (occurrence: US)
  Receive Date: 20151120
  Receipt Date: 20151120
  Transmission Date: 20160304
  Serious: Yes (Other)
  Sender: FDA-Public Use
  Company Number: US-ASTRAZENECA-2015SF11133

PATIENT
  Age: 63 Year
  Sex: Female
  Weight: 79.4 kg

DRUGS (17)
  1. GABAPENTIN. [Concomitant]
     Active Substance: GABAPENTIN
     Indication: PAIN
     Route: 048
     Dates: start: 201508
  2. GARLIC PILLS [Concomitant]
     Indication: CARDIOVASCULAR DISORDER
     Route: 048
     Dates: start: 2005
  3. ALLEGRA [Concomitant]
     Active Substance: FEXOFENADINE HYDROCHLORIDE
     Indication: MULTIPLE ALLERGIES
     Route: 048
     Dates: start: 2000
  4. VITAMIN B12 [Concomitant]
     Active Substance: CYANOCOBALAMIN
     Indication: IMMUNE SYSTEM DISORDER
     Route: 048
     Dates: start: 2011
  5. VITAMIN D3 [Concomitant]
     Active Substance: CHOLECALCIFEROL
     Indication: SUPPLEMENTATION THERAPY
     Route: 048
     Dates: start: 2008
  6. VITAMIN B12 [Concomitant]
     Active Substance: CYANOCOBALAMIN
     Indication: METABOLIC DISORDER
     Route: 048
     Dates: start: 2011
  7. NEXIUM [Suspect]
     Active Substance: ESOMEPRAZOLE MAGNESIUM
     Indication: GASTROOESOPHAGEAL REFLUX DISEASE
     Route: 048
  8. PRILOSEC [Suspect]
     Active Substance: OMEPRAZOLE MAGNESIUM
     Indication: GASTROOESOPHAGEAL REFLUX DISEASE
     Route: 048
  9. MULTIVITAMINS [Concomitant]
     Active Substance: VITAMINS
     Indication: SUPPLEMENTATION THERAPY
     Dosage: DAILY
     Route: 048
     Dates: start: 2014
  10. VITAMIN B12 [Concomitant]
     Active Substance: CYANOCOBALAMIN
     Indication: ASTHENIA
     Route: 048
     Dates: start: 2011
  11. LISINOPRIL. [Suspect]
     Active Substance: LISINOPRIL
     Indication: BLOOD PRESSURE ABNORMAL
     Route: 048
     Dates: start: 201503
  12. SOTALOL. [Concomitant]
     Active Substance: SOTALOL
     Indication: BLOOD PRESSURE ABNORMAL
     Route: 048
     Dates: start: 201503
  13. XARELTO [Concomitant]
     Active Substance: RIVAROXABAN
     Indication: ATRIAL FIBRILLATION
     Route: 048
     Dates: start: 201503
  14. GARLIC PILLS [Concomitant]
     Indication: CARDIAC DISORDER
     Route: 048
     Dates: start: 2005
  15. NEXIUM [Suspect]
     Active Substance: ESOMEPRAZOLE MAGNESIUM
     Indication: GASTROOESOPHAGEAL REFLUX DISEASE
     Route: 048
     Dates: start: 2001
  16. XARELTO [Concomitant]
     Active Substance: RIVAROXABAN
     Indication: ANTICOAGULANT THERAPY
     Route: 048
     Dates: start: 201503
  17. VITAMIN B COMPLEX [Concomitant]
     Active Substance: CYANOCOBALAMIN\DEXPANTHENOL\NIACINAMIDE\PYRIDOXINE HYDROCHLORIDE\RIBOFLAVIN 5^-PHOSPHATE SODIUM\THIAMINE HYDROCHLORIDE\VITAMIN B COMPLEX
     Indication: IMMUNE SYSTEM DISORDER
     Dosage: DAILY
     Route: 048
     Dates: start: 2014

REACTIONS (8)
  - Gastrooesophageal reflux disease [Unknown]
  - Lung neoplasm malignant [Unknown]
  - Blood chromogranin A increased [Unknown]
  - Drug ineffective [Unknown]
  - Atrial fibrillation [Unknown]
  - Intervertebral disc protrusion [Unknown]
  - Sciatic nerve neuropathy [Unknown]
  - Sleep disorder due to general medical condition, insomnia type [Unknown]

NARRATIVE: CASE EVENT DATE: 2008
